FAERS Safety Report 9026441 (Version 1)
Quarter: 2012Q4

REPORT INFORMATION
  Report Type: Spontaneous
  Country: ES (occurrence: None)
  Receive Date: 20121226
  Receipt Date: 20121226
  Transmission Date: 20130627
  Serious: Yes (Life-Threatening, Other)
  Sender: FDA-Public Use
  Company Number: 2012034282

PATIENT
  Age: 50 Year
  Sex: Male

DRUGS (9)
  1. RIASTAP [Suspect]
     Indication: PROCEDURAL HAEMORRHAGE
     Dosage: Doses: single, Units/No. of kits: 7 units
     Dates: start: 20120928, end: 20120928
  2. RIASTAP [Suspect]
     Indication: LIVER TRANSPLANT
     Dosage: Doses: single, Units/No. of kits: 7 units
     Dates: start: 20120928, end: 20120928
  3. MYCOPHENOLATE SODIUM (MYCOPHENOLATE SODIUM) [Concomitant]
  4. BASILIXIMAB (BASILIXIMAB) [Concomitant]
  5. PREDNISONE (PREDNISONE) [Concomitant]
  6. NORFLOXACIN (NORFLOXACIN) [Concomitant]
  7. NORADRENALINE (NOREPINEPHRINE) [Concomitant]
  8. FUROSEMIDE (FUROSEMIDE) [Concomitant]
  9. RIFAXIMIN (RIFAXIMIN) [Concomitant]

REACTIONS (4)
  - Shock haemorrhagic [None]
  - Surgical procedure repeated [None]
  - Coagulopathy [None]
  - Peritoneal haemorrhage [None]
